FAERS Safety Report 18065091 (Version 1)
Quarter: 2020Q3

REPORT INFORMATION
  Report Type: Spontaneous
  Country: RU (occurrence: RU)
  Receive Date: 20200724
  Receipt Date: 20200724
  Transmission Date: 20201103
  Serious: Yes (Hospitalization)
  Sender: FDA-Public Use
  Company Number: RU-AAVISPHARMA-2020AP000001

PATIENT

DRUGS (1)
  1. AMPHETAMINE SULFATE. [Suspect]
     Active Substance: AMPHETAMINE SULFATE
     Indication: DRUG ABUSE
     Route: 048

REACTIONS (2)
  - Dependence [Not Recovered/Not Resolved]
  - Libido increased [Not Recovered/Not Resolved]
